FAERS Safety Report 24823391 (Version 1)
Quarter: 2025Q1

REPORT INFORMATION
  Report Type: Spontaneous
  Country: FR (occurrence: FR)
  Receive Date: 20250109
  Receipt Date: 20250109
  Transmission Date: 20250408
  Serious: Yes (Life-Threatening)
  Sender: CHEPLAPHARM
  Company Number: None

PATIENT
  Age: 39 Year
  Sex: Female

DRUGS (2)
  1. CLONAZEPAM [Suspect]
     Active Substance: CLONAZEPAM
     Indication: Postoperative analgesia
     Route: 048
     Dates: start: 20241025, end: 20241025
  2. CLONAZEPAM [Suspect]
     Active Substance: CLONAZEPAM
     Indication: Postoperative analgesia
     Dosage: STRENGTH: 1 MG/1 ML,?SOLUTIONS TO DILUTE?INJECTABLE IN AMPOULES?DAILY DOSE: 4 DROP
     Route: 048
     Dates: start: 20241025, end: 20241025

REACTIONS (6)
  - Nausea [Recovered/Resolved]
  - Somnolence [Recovered/Resolved]
  - Product prescribing error [Recovered/Resolved]
  - Product administration error [Recovered/Resolved]
  - Accidental overdose [Recovered/Resolved]
  - Off label use [Unknown]

NARRATIVE: CASE EVENT DATE: 20241025
